FAERS Safety Report 4993008-9 (Version None)
Quarter: 2006Q2

REPORT INFORMATION
  Report Type: 
  Country: None (occurrence: None)
  Receive Date: 20060504
  Receipt Date: 20050412
  Transmission Date: 20061013
  Serious: Yes (Life-Threatening, Hospitalization, Disabling)
  Sender: FDA-Public Use
  Company Number: AU-MERCK-0504AUS00112

PATIENT
  Age: 34 Year
  Sex: Female

DRUGS (5)
  1. VIOXX [Suspect]
     Indication: JOINT INJURY
     Route: 048
     Dates: start: 19991101, end: 20040501
  2. VIOXX [Suspect]
     Indication: NECK PAIN
     Route: 048
     Dates: start: 19991101, end: 20040501
  3. CELECOXIB [Suspect]
     Indication: NECK PAIN
     Route: 048
     Dates: start: 20050301
  4. ATENOLOL [Concomitant]
     Indication: HEART RATE IRREGULAR
     Route: 065
     Dates: end: 20040501
  5. PROPRANOLOL HYDROCHLORIDE [Concomitant]
     Indication: HEART RATE IRREGULAR
     Route: 065
     Dates: end: 20040501

REACTIONS (17)
  - AMNESIA [None]
  - ATRIAL FIBRILLATION [None]
  - CARDIAC DISORDER [None]
  - CHEST PAIN [None]
  - HEART RATE IRREGULAR [None]
  - INFECTIOUS MONONUCLEOSIS [None]
  - LOSS OF CONSCIOUSNESS [None]
  - MIGRAINE [None]
  - MUSCLE SPASMS [None]
  - PAIN IN EXTREMITY [None]
  - PARAESTHESIA [None]
  - PHOTOPHOBIA [None]
  - SPINAL DISORDER [None]
  - TACHYCARDIA [None]
  - THYROID DISORDER [None]
  - TRANSIENT ISCHAEMIC ATTACK [None]
  - VENTRICULAR TACHYCARDIA [None]
